FAERS Safety Report 10197274 (Version 2)
Quarter: 2014Q2

REPORT INFORMATION
  Report Type: Report from Study
  Country: PY (occurrence: PY)
  Receive Date: 20140527
  Receipt Date: 20140528
  Transmission Date: 20141212
  Serious: Yes (Death, Hospitalization, Other)
  Sender: FDA-Public Use
  Company Number: PHHY2014PY063941

PATIENT
  Sex: Male
  Weight: 55 kg

DRUGS (2)
  1. GLIVEC [Suspect]
     Indication: CHRONIC MYELOID LEUKAEMIA
     Dosage: 400 MG, DAILY
     Route: 048
     Dates: start: 201401
  2. GLIVEC [Suspect]
     Dosage: 400 MG, UNK
     Route: 048
     Dates: start: 20140204, end: 20140515

REACTIONS (4)
  - Septic shock [Fatal]
  - Sepsis [Fatal]
  - Device related infection [Unknown]
  - Osteomyelitis [Unknown]
